FAERS Safety Report 21315734 (Version 3)
Quarter: 2022Q4

REPORT INFORMATION
  Report Type: Spontaneous
  Country: JP (occurrence: JP)
  Receive Date: 20220909
  Receipt Date: 20221122
  Transmission Date: 20230112
  Serious: Yes (Death, Hospitalization, Other)
  Sender: FDA-Public Use
  Company Number: JP-MSD-M2022-37419

PATIENT
  Age: 72 Year
  Sex: Male

DRUGS (3)
  1. KEYTRUDA [Suspect]
     Active Substance: PEMBROLIZUMAB
     Indication: Salivary gland cancer stage IV
     Dosage: 200 MILLIGRAM, Q3W
     Route: 041
     Dates: start: 20220810, end: 20220810
  2. FLUOROURACIL [Concomitant]
     Active Substance: FLUOROURACIL
     Indication: Salivary gland cancer stage IV
     Dosage: UNK
     Route: 041
     Dates: start: 20220810, end: 2022
  3. CARBOPLATIN [Concomitant]
     Active Substance: CARBOPLATIN
     Indication: Salivary gland cancer stage IV
     Dosage: UNK
     Route: 041
     Dates: start: 20220810, end: 2022

REACTIONS (3)
  - Disseminated intravascular coagulation [Fatal]
  - Pneumonia bacterial [Fatal]
  - Malignant neoplasm progression [Unknown]

NARRATIVE: CASE EVENT DATE: 20220823
